FAERS Safety Report 13359941 (Version 2)
Quarter: 2017Q2

REPORT INFORMATION
  Report Type: Spontaneous
  Country: FR (occurrence: FR)
  Receive Date: 20170322
  Receipt Date: 20170510
  Transmission Date: 20170830
  Serious: Yes (Hospitalization)
  Sender: FDA-Public Use
  Company Number: FR-SA-2017SA044608

PATIENT
  Age: 28 Year
  Sex: Female

DRUGS (2)
  1. CLOMID [Suspect]
     Active Substance: CLOMIPHENE CITRATE
     Indication: ASSISTED FERTILISATION
     Route: 048
     Dates: start: 20161002
  2. LEVOTHYROXINE SODIUM. [Concomitant]
     Active Substance: LEVOTHYROXINE SODIUM
     Indication: HYPOTHYROIDISM
     Route: 048

REACTIONS (2)
  - Depressed level of consciousness [Recovering/Resolving]
  - Depersonalisation/derealisation disorder [Recovered/Resolved]

NARRATIVE: CASE EVENT DATE: 20161006
